FAERS Safety Report 19822913 (Version 1)
Quarter: 2021Q3

REPORT INFORMATION
  Report Type: Report from Study
  Country: CO (occurrence: CO)
  Receive Date: 20210913
  Receipt Date: 20210913
  Transmission Date: 20211014
  Serious: Yes (Hospitalization, Disabling)
  Sender: FDA-Public Use
  Company Number: NVSC2021CO192501

PATIENT
  Sex: Female

DRUGS (1)
  1. VSIQQ [Suspect]
     Active Substance: BROLUCIZUMAB
     Indication: NEOVASCULAR AGE-RELATED MACULAR DEGENERATION
     Dosage: UNK, QMO
     Route: 047

REACTIONS (1)
  - Illness [Unknown]
